FAERS Safety Report 10086208 (Version 1)
Quarter: 2014Q2

REPORT INFORMATION
  Report Type: Report from Study
  Country: CA (occurrence: CA)
  Receive Date: 20140418
  Receipt Date: 20140418
  Transmission Date: 20141212
  Serious: Yes (Congenital Anomaly)
  Sender: FDA-Public Use
  Company Number: CA-JNJFOC-20140409605

PATIENT
  Age: 0 Day
  Sex: Female

DRUGS (1)
  1. REMICADE [Suspect]
     Indication: CROHN^S DISEASE
     Route: 064
     Dates: start: 2010

REACTIONS (2)
  - Renal aplasia [Unknown]
  - Foetal exposure during pregnancy [Recovered/Resolved]
